FAERS Safety Report 5042828-3 (Version None)
Quarter: 2006Q3

REPORT INFORMATION
  Report Type: 
  Country: None (occurrence: None)
  Receive Date: 20060705
  Receipt Date: 20050328
  Transmission Date: 20061208
  Serious: Yes (Death)
  Sender: FDA-Public Use
  Company Number: US-GLAXOSMITHKLINE-A0553285A

PATIENT
  Age: 19 Year
  Sex: Male
  Weight: 60.9 kg

DRUGS (1)
  1. PAXIL CR [Suspect]
     Indication: ANXIETY
     Dosage: 12.5MG PER DAY
     Route: 048
     Dates: start: 20040914

REACTIONS (4)
  - COMPLETED SUICIDE [None]
  - CRYING [None]
  - EMOTIONAL DISTRESS [None]
  - MOOD ALTERED [None]
